FAERS Safety Report 23932399 (Version 1)
Quarter: 2024Q2

REPORT INFORMATION
  Report Type: Spontaneous
  Country: CA (occurrence: CA)
  Receive Date: 20240603
  Receipt Date: 20240603
  Transmission Date: 20240716
  Serious: Yes (Other)
  Sender: FDA-Public Use
  Company Number: CA-PFIZER INC-202400050872

PATIENT
  Age: 10 Year
  Sex: Female

DRUGS (12)
  1. ABRILADA [Suspect]
     Active Substance: ADALIMUMAB-AFZB
     Indication: Crohn^s disease
     Dosage: 160 MG ON WEEK 0, 80 MG ON WEEK 2, 40 MG EVERY 2 WEEKS STARTING WEEK 4
     Route: 058
  2. ABRILADA [Suspect]
     Active Substance: ADALIMUMAB-AFZB
     Dosage: 40 MG, EVERY 2 WEEKS (WEEK 0 160MGWEEK 2 80MG MAINTENANCE 40MG EVERY 2 WEEKS)
     Route: 058
     Dates: start: 20240309
  3. CIPROFLOXACIN [Concomitant]
     Active Substance: CIPROFLOXACIN
     Dosage: UNK
  4. BETAMETHASONE DIPROPIONATE\CALCIPOTRIENE MONOHYDRATE [Concomitant]
     Active Substance: BETAMETHASONE DIPROPIONATE\CALCIPOTRIENE MONOHYDRATE
     Dosage: UNK
  5. MOMETASONE FUROATE [Concomitant]
     Active Substance: MOMETASONE FUROATE
     Dosage: UNK
  6. FOLIC ACID [Concomitant]
     Active Substance: FOLIC ACID
     Dosage: UNK
  7. LANSOPRAZOLE [Concomitant]
     Active Substance: LANSOPRAZOLE
     Dosage: UNK
  8. METHOTREXATE [Concomitant]
     Active Substance: METHOTREXATE
     Dosage: UNK
  9. METRONIDAZOLE [Concomitant]
     Active Substance: METRONIDAZOLE
     Dosage: UNK
  10. PROTOPIC [Concomitant]
     Active Substance: TACROLIMUS
     Dosage: UNK
  11. STELARA [Concomitant]
     Active Substance: USTEKINUMAB
     Dosage: UNK
  12. USTEKINUMAB [Concomitant]
     Active Substance: USTEKINUMAB
     Dosage: UNK

REACTIONS (2)
  - Faecal calprotectin increased [Unknown]
  - Off label use [Unknown]
